FAERS Safety Report 4968455-1 (Version None)
Quarter: 2006Q2

REPORT INFORMATION
  Report Type: 
  Country: None (occurrence: None)
  Receive Date: 20060410
  Receipt Date: 20050928
  Transmission Date: 20061013
  Serious: Yes (Hospitalization, Other)
  Sender: FDA-Public Use
  Company Number: US-MERCK-0509USA04811

PATIENT
  Age: 43 Year
  Sex: Female
  Weight: 56 kg

DRUGS (1)
  1. VIOXX [Suspect]
     Indication: OSTEOARTHRITIS
     Route: 048
     Dates: start: 20000201, end: 20040930

REACTIONS (9)
  - ABDOMINAL PAIN UPPER [None]
  - BRONCHITIS [None]
  - CARDIAC VALVE DISEASE [None]
  - DEHYDRATION [None]
  - LOBAR PNEUMONIA [None]
  - MYOCARDIAL INFARCTION [None]
  - SEPSIS [None]
  - SINUSITIS [None]
  - TONSILLITIS [None]
